FAERS Safety Report 7813331-X (Version None)
Quarter: 2011Q4

REPORT INFORMATION
  Report Type: 
  Country: None (occurrence: None)
  Receive Date: 20111013
  Receipt Date: 20110929
  Transmission Date: 20120403
  Serious: Yes (Other)
  Sender: FDA-Public Use
  Company Number: US-ROCHE-1002363

PATIENT
  Sex: Female

DRUGS (6)
  1. ACCUTANE [Suspect]
     Indication: ACNE
     Dates: start: 19980101, end: 19990101
  2. ACCUTANE [Suspect]
     Route: 065
     Dates: start: 20090401, end: 20090901
  3. SOTRET [Suspect]
     Dates: start: 20090401, end: 20090901
  4. CLARAVIS [Suspect]
     Dates: start: 20090401, end: 20090901
  5. SOTRET [Suspect]
     Indication: ACNE
     Dates: start: 19980101, end: 19990101
  6. CLARAVIS [Suspect]
     Indication: ACNE
     Dates: start: 19980101, end: 19990101

REACTIONS (2)
  - COLITIS ULCERATIVE [None]
  - ANXIETY [None]
